FAERS Safety Report 23189600 (Version 4)
Quarter: 2023Q4

REPORT INFORMATION
  Report Type: Other
  Country: US (occurrence: None)
  Receive Date: 20231116
  Receipt Date: 20231218
  Transmission Date: 20240109
  Serious: Yes (Hospitalization)
  Sender: FDA-Public Use
  Company Number: US-ROCHE-3453851

PATIENT
  Age: 60 Year
  Sex: Female
  Weight: 63.56 kg

DRUGS (18)
  1. OCRELIZUMAB [Suspect]
     Active Substance: OCRELIZUMAB
     Indication: Relapsing-remitting multiple sclerosis
     Dosage: FIRST HALF DOSE
     Route: 065
     Dates: start: 20201111
  2. OCRELIZUMAB [Suspect]
     Active Substance: OCRELIZUMAB
     Dosage: SECOND HALF DOSE
     Route: 065
     Dates: start: 20201123
  3. OCRELIZUMAB [Suspect]
     Active Substance: OCRELIZUMAB
     Route: 065
     Dates: start: 20210526
  4. OCRELIZUMAB [Suspect]
     Active Substance: OCRELIZUMAB
     Route: 065
     Dates: start: 20211124
  5. OCRELIZUMAB [Suspect]
     Active Substance: OCRELIZUMAB
     Route: 065
     Dates: start: 20220525
  6. OCRELIZUMAB [Suspect]
     Active Substance: OCRELIZUMAB
     Route: 065
     Dates: start: 20221121
  7. OCRELIZUMAB [Suspect]
     Active Substance: OCRELIZUMAB
     Route: 065
     Dates: start: 20230522
  8. LISINOPRIL [Concomitant]
     Active Substance: LISINOPRIL
     Dates: start: 2022
  9. OMEPRAZOLE [Concomitant]
     Active Substance: OMEPRAZOLE
  10. ATORVASTATIN [Concomitant]
     Active Substance: ATORVASTATIN
  11. DILTIAZEM [Concomitant]
     Active Substance: DILTIAZEM
     Dates: start: 2019
  12. ASPIRIN [Concomitant]
     Active Substance: ASPIRIN
  13. DOCUSATE SODIUM [Concomitant]
     Active Substance: DOCUSATE SODIUM
     Dates: start: 2018
  14. LACOSAMIDE [Concomitant]
     Active Substance: LACOSAMIDE
     Dates: start: 2019
  15. ARIPIPRAZOLE [Concomitant]
     Active Substance: ARIPIPRAZOLE
     Dates: start: 2021
  16. LEVETIRACETAM [Concomitant]
     Active Substance: LEVETIRACETAM
     Dates: start: 2020
  17. LEVOFLOXACIN [Concomitant]
     Active Substance: LEVOFLOXACIN
     Dates: start: 20230408, end: 20230416
  18. SACUBITRIL\VALSARTAN [Concomitant]
     Active Substance: SACUBITRIL\VALSARTAN
     Dates: start: 20230410

REACTIONS (2)
  - Pulmonary embolism [Recovered/Resolved]
  - COVID-19 [Recovered/Resolved]

NARRATIVE: CASE EVENT DATE: 20231028
